APPROVED DRUG PRODUCT: HYDROCODONE BITARTRATE AND ACETAMINOPHEN
Active Ingredient: ACETAMINOPHEN; HYDROCODONE BITARTRATE
Strength: 300MG;5MG
Dosage Form/Route: TABLET;ORAL
Application: A207509 | Product #001 | TE Code: AA
Applicant: HIBROW HEALTHCARE PRIVATE LTD
Approved: Oct 29, 2018 | RLD: No | RS: No | Type: RX